FAERS Safety Report 5026459-7 (Version None)
Quarter: 2006Q2

REPORT INFORMATION
  Report Type: 
  Country: None (occurrence: None)
  Receive Date: 20060613
  Receipt Date: 20060613
  Transmission Date: 20061013
  Serious: Yes (Death)
  Sender: FDA-Public Use
  Company Number: None

PATIENT
  Age: 45 Year
  Sex: Female
  Weight: 113.3993 kg

DRUGS (4)
  1. XYREM [Suspect]
     Indication: FATIGUE
     Dosage: 2-3.5 MG X 2 -} PO
     Route: 048
     Dates: start: 20051021, end: 20050101
  2. XYREM [Suspect]
     Indication: INSOMNIA
     Dosage: 2-3.5 MG X 2 -} PO
     Route: 048
     Dates: start: 20051021, end: 20050101
  3. XYREM [Suspect]
     Indication: FATIGUE
     Dosage: 2-3.5 MG X 2 -} PO
     Route: 048
     Dates: start: 20050922, end: 20050924
  4. XYREM [Suspect]
     Indication: INSOMNIA
     Dosage: 2-3.5 MG X 2 -} PO
     Route: 048
     Dates: start: 20050922, end: 20050924

REACTIONS (6)
  - AFFECTIVE DISORDER [None]
  - DRUG RESISTANCE [None]
  - GENERALISED ANXIETY DISORDER [None]
  - INSOMNIA [None]
  - SLEEP APNOEA SYNDROME [None]
  - THERAPY NON-RESPONDER [None]
